FAERS Safety Report 11175762 (Version 1)
Quarter: 2015Q2

REPORT INFORMATION
  Report Type: Spontaneous
  Country: US (occurrence: US)
  Receive Date: 20150609
  Receipt Date: 20150609
  Transmission Date: 20150821
  Serious: No
  Sender: FDA-Public Use
  Company Number: US-GLAXOSMITHKLINE-US2015GSK072484

PATIENT
  Age: 79 Year
  Sex: Female

DRUGS (1)
  1. VOTRIENT [Suspect]
     Active Substance: PAZOPANIB HYDROCHLORIDE
     Indication: ILL-DEFINED DISORDER
     Dosage: 800 MG, QD
     Route: 048
     Dates: start: 20150509, end: 20150513

REACTIONS (2)
  - Fatigue [Unknown]
  - Jaundice [Unknown]

NARRATIVE: CASE EVENT DATE: 20150509
